FAERS Safety Report 18789387 (Version 1)
Quarter: 2021Q1

REPORT INFORMATION
  Report Type: Spontaneous
  Country: US (occurrence: US)
  Receive Date: 20210126
  Receipt Date: 20210126
  Transmission Date: 20210419
  Serious: Yes (Other)
  Sender: FDA-Public Use
  Company Number: None

PATIENT
  Age: 68 Year
  Sex: Female
  Weight: 44.1 kg

DRUGS (10)
  1. PANTOPRAZOLE [Concomitant]
     Active Substance: PANTOPRAZOLE
  2. CLONIDINE. [Concomitant]
     Active Substance: CLONIDINE
  3. AMLODIPINE [Concomitant]
     Active Substance: AMLODIPINE BESYLATE
  4. ATORVASTATIN [Concomitant]
     Active Substance: ATORVASTATIN
  5. ZINC. [Concomitant]
     Active Substance: ZINC
  6. SUTENT [Suspect]
     Active Substance: SUNITINIB MALATE
     Indication: RENAL CANCER
     Route: 048
     Dates: start: 20201204
  7. CARVEDILOL. [Concomitant]
     Active Substance: CARVEDILOL
  8. COENZYME Q 10 [Concomitant]
  9. AMITIZA [Concomitant]
     Active Substance: LUBIPROSTONE
  10. VITAMIN B12 [Concomitant]
     Active Substance: CYANOCOBALAMIN

REACTIONS (4)
  - Dysphagia [None]
  - Eating disorder [None]
  - Oral discomfort [None]
  - Ageusia [None]

NARRATIVE: CASE EVENT DATE: 20210126
